FAERS Safety Report 24249714 (Version 1)
Quarter: 2024Q3

REPORT INFORMATION
  Report Type: Spontaneous
  Country: US (occurrence: US)
  Receive Date: 20240826
  Receipt Date: 20240826
  Transmission Date: 20241017
  Serious: Yes (Other)
  Sender: ELI LILLY AND CO
  Company Number: US-ELI_LILLY_AND_COMPANY-US202408009068

PATIENT
  Age: 73 Year
  Sex: Female

DRUGS (2)
  1. VERZENIO [Suspect]
     Active Substance: ABEMACICLIB
     Indication: Breast cancer stage II
     Dosage: 150 MG, BID
     Route: 048
     Dates: start: 20240719, end: 20240731
  2. ANASTROZOLE [Concomitant]
     Active Substance: ANASTROZOLE
     Indication: Breast cancer stage II

REACTIONS (13)
  - Weight decreased [Unknown]
  - Malaise [Recovering/Resolving]
  - Mouth swelling [Recovering/Resolving]
  - Feeding disorder [Recovering/Resolving]
  - Abnormal faeces [Recovering/Resolving]
  - Decreased appetite [Recovering/Resolving]
  - Nausea [Recovering/Resolving]
  - Asthenia [Recovering/Resolving]
  - White blood cell count decreased [Recovering/Resolving]
  - Blood creatinine increased [Recovering/Resolving]
  - Platelet count decreased [Recovering/Resolving]
  - Haemoglobin decreased [Recovering/Resolving]
  - Diarrhoea [Recovering/Resolving]

NARRATIVE: CASE EVENT DATE: 20240701
